FAERS Safety Report 6295442-6 (Version None)
Quarter: 2009Q3

REPORT INFORMATION
  Report Type: 
  Country: None (occurrence: None)
  Receive Date: 20090803
  Receipt Date: 20090723
  Transmission Date: 20100115
  Serious: Yes (Death, Life-Threatening, Hospitalization)
  Sender: FDA-Public Use
  Company Number: FR-BAXTER-2009BH012049

PATIENT
  Age: 17 Year
  Sex: Female

DRUGS (28)
  1. ENDOXAN BAXTER [Suspect]
     Indication: SJOGREN'S SYNDROME
     Route: 042
     Dates: start: 20081211
  2. PANTOPRAZOLE SODIUM [Suspect]
     Indication: PROPHYLAXIS AGAINST GASTROINTESTINAL ULCER
     Route: 042
     Dates: start: 20081201
  3. PHENOBARBITAL [Suspect]
     Indication: EPILEPSY
     Route: 042
     Dates: start: 20081201
  4. TAZOCILLINE [Suspect]
     Indication: ESCHERICHIA INFECTION
     Route: 042
     Dates: start: 20081225
  5. VANCOMYCIN [Suspect]
     Indication: STAPHYLOCOCCAL INFECTION
     Route: 042
     Dates: start: 20081201
  6. PROPOFOL [Suspect]
     Indication: SEDATION
     Route: 042
     Dates: start: 20081218
  7. PENTOTHAL [Suspect]
     Indication: SEDATION
     Route: 042
     Dates: start: 20081208
  8. DEPAKENE [Suspect]
     Indication: EPILEPSY
     Route: 042
     Dates: start: 20081226
  9. LEVETIRACETAM [Suspect]
     Indication: EPILEPSY
     Route: 042
     Dates: start: 20081206
  10. AMIKLIN [Suspect]
     Indication: ESCHERICHIA INFECTION
     Route: 042
     Dates: start: 20081225
  11. URBANYL [Suspect]
     Indication: EPILEPSY
     Route: 042
     Dates: start: 20081215
  12. PRODILANTIN [Suspect]
     Indication: EPILEPSY
     Route: 042
     Dates: start: 20081209
  13. SUFENTANIL CITRATE [Suspect]
     Indication: SEDATION
     Route: 042
     Dates: start: 20081129, end: 20081225
  14. ACYCLOVIR [Concomitant]
     Indication: EPILEPSY
     Route: 065
  15. CEFOTAXIME [Concomitant]
     Indication: EPILEPSY
     Route: 042
  16. MIDAZOLAM HCL [Concomitant]
     Indication: DRUG USE FOR UNKNOWN INDICATION
     Route: 042
     Dates: start: 20081128, end: 20081209
  17. LACTULOSE [Concomitant]
     Indication: DRUG USE FOR UNKNOWN INDICATION
     Route: 065
  18. METHYLPREDNISOLONE [Concomitant]
     Indication: DRUG USE FOR UNKNOWN INDICATION
     Route: 065
  19. METHYLPREDNISOLONE [Concomitant]
     Route: 065
     Dates: start: 20081219, end: 20081221
  20. IMMUNOGLOBULINS [Concomitant]
     Indication: DRUG USE FOR UNKNOWN INDICATION
     Route: 042
     Dates: start: 20081219, end: 20081223
  21. NEUPOGEN [Concomitant]
     Indication: DRUG USE FOR UNKNOWN INDICATION
     Route: 042
     Dates: start: 20081201
  22. PARACETAMOL [Concomitant]
     Indication: DRUG USE FOR UNKNOWN INDICATION
     Route: 065
  23. NEOSTIGMINE [Concomitant]
     Indication: DRUG USE FOR UNKNOWN INDICATION
     Route: 065
     Dates: start: 20081101
  24. NORADRENALINE [Concomitant]
     Indication: DRUG USE FOR UNKNOWN INDICATION
     Route: 065
  25. ACYCLOVIR [Concomitant]
     Indication: PYREXIA
     Route: 065
  26. ACYCLOVIR [Concomitant]
     Indication: COMA
     Route: 065
  27. CEFOTAXIME [Concomitant]
     Indication: PYREXIA
     Route: 065
  28. CEFOTAXIME [Concomitant]
     Indication: COMA
     Route: 065

REACTIONS (16)
  - ACUTE RESPIRATORY FAILURE [None]
  - AGRANULOCYTOSIS [None]
  - DIALYSIS [None]
  - DISTURBANCE IN ATTENTION [None]
  - ENCEPHALITIS [None]
  - ESCHERICHIA BACTERAEMIA [None]
  - HISTIOCYTOSIS HAEMATOPHAGIC [None]
  - HYPERAMMONAEMIA [None]
  - HYPERCAPNIA [None]
  - LUNG INFECTION [None]
  - MULTI-ORGAN FAILURE [None]
  - NO THERAPEUTIC RESPONSE [None]
  - PANCYTOPENIA [None]
  - RENAL FAILURE ACUTE [None]
  - SEPTIC SHOCK [None]
  - STAPHYLOCOCCAL INFECTION [None]
